FAERS Safety Report 8947079 (Version 1)
Quarter: 2012Q4

REPORT INFORMATION
  Report Type: 
  Country: US (occurrence: US)
  Receive Date: 20121205
  Receipt Date: 20121205
  Transmission Date: 20130627
  Serious: Yes (Other)
  Sender: FDA-Public Use
  Company Number: US-ROCHE-1164237

PATIENT

DRUGS (2)
  1. BEVACIZUMAB [Suspect]
     Indication: GLIOBLASTOMA MULTIFORME
     Route: 065
  2. TEMOZOLOMIDE [Suspect]
     Indication: GLIOBLASTOMA MULTIFORME
     Route: 065

REACTIONS (4)
  - Encephalopathy [Unknown]
  - Psychotic disorder [Unknown]
  - Muscular weakness [Unknown]
  - Neutropenia [Unknown]
